FAERS Safety Report 5985018-X (Version None)
Quarter: 2008Q4

REPORT INFORMATION
  Report Type: 
  Country: None (occurrence: None)
  Receive Date: 20081208
  Receipt Date: 20080701
  Transmission Date: 20090506
  Serious: Yes (Hospitalization)
  Sender: FDA-Public Use
  Company Number: US-AMGEN-QUU289476

PATIENT
  Sex: Female

DRUGS (15)
  1. ENBREL [Suspect]
     Indication: RHEUMATOID ARTHRITIS
     Route: 058
     Dates: start: 19990101
  2. METHOTREXATE [Concomitant]
     Route: 048
  3. ACTONEL [Concomitant]
  4. CYTOTEC [Concomitant]
  5. FOLIC ACID [Concomitant]
  6. IBUPROFEN TABLETS [Concomitant]
  7. FLEXERIL [Concomitant]
  8. HYDROCODONE BITARTRATE [Concomitant]
  9. ASPIRIN [Concomitant]
  10. VITAMINE C [Concomitant]
  11. MULTI-VITAMINS [Concomitant]
  12. FLAX SEED OIL [Concomitant]
  13. CALCIUM WITH VITAMIN D [Concomitant]
  14. VITAMIN B COMPLEX CAP [Concomitant]
  15. PREMARIN [Concomitant]
     Route: 067

REACTIONS (15)
  - CELLULITIS [None]
  - CYST [None]
  - EXOSTOSIS [None]
  - GRIP STRENGTH DECREASED [None]
  - HYPERLIPIDAEMIA [None]
  - INFLUENZA LIKE ILLNESS [None]
  - JOINT HYPEREXTENSION [None]
  - JOINT RANGE OF MOTION DECREASED [None]
  - LIMB DEFORMITY [None]
  - MALAISE [None]
  - METATARSALGIA [None]
  - NODULE ON EXTREMITY [None]
  - OSTEOPOROSIS [None]
  - PNEUMONIA [None]
  - STRESS FRACTURE [None]
